FAERS Safety Report 23961621 (Version 1)
Quarter: 2024Q2

REPORT INFORMATION
  Report Type: Spontaneous
  Country: US (occurrence: None)
  Receive Date: 20240610
  Receipt Date: 20240610
  Transmission Date: 20240716
  Serious: Yes (Hospitalization)
  Sender: FDA-Public Use
  Company Number: None

PATIENT
  Age: 76 Year
  Sex: Male

DRUGS (1)
  1. RAYALDEE [Suspect]
     Active Substance: CALCIFEDIOL
     Dosage: FREQUENCY : DAILY;?
     Route: 048
     Dates: start: 20240306

REACTIONS (4)
  - Volume blood decreased [None]
  - Transfusion [None]
  - Bladder neoplasm [None]
  - Therapy interrupted [None]

NARRATIVE: CASE EVENT DATE: 20240522
